FAERS Safety Report 10929719 (Version 1)
Quarter: 2015Q1

REPORT INFORMATION
  Report Type: Spontaneous
  Country: CN (occurrence: CN)
  Receive Date: 20150319
  Receipt Date: 20150319
  Transmission Date: 20150721
  Serious: Yes (Other)
  Sender: FDA-Public Use
  Company Number: CN-PFIZER INC-2015095976

PATIENT
  Age: 66 Year
  Sex: Female
  Weight: 50 kg

DRUGS (2)
  1. MEDROL [Suspect]
     Active Substance: METHYLPREDNISOLONE
     Dosage: 24 MG, DAILY
     Route: 048
     Dates: start: 20130115, end: 20130205
  2. MEDROL [Suspect]
     Active Substance: METHYLPREDNISOLONE
     Indication: NEPHROTIC SYNDROME
     Dosage: 32 MG, DAILY
     Route: 048
     Dates: start: 20121222, end: 20130114

REACTIONS (3)
  - Maculopathy [Unknown]
  - Oedema peripheral [Not Recovered/Not Resolved]
  - Retinopathy [Unknown]

NARRATIVE: CASE EVENT DATE: 20130110
